FAERS Safety Report 4275082-0 (Version None)
Quarter: 2004Q1

REPORT INFORMATION
  Report Type: 
  Country: None (occurrence: None)
  Receive Date: 20040116
  Receipt Date: 20040105
  Transmission Date: 20041129
  Serious: Yes (Hospitalization)
  Sender: FDA-Public Use
  Company Number: 2003033768

PATIENT
  Age: 80 Year
  Sex: Male
  Weight: 94 kg

DRUGS (4)
  1. LITHIUM CARBONATE [Suspect]
     Indication: ILL-DEFINED DISORDER
     Dosage: ORAL
     Route: 048
     Dates: start: 19960101
  2. METFORMIN HCL [Concomitant]
  3. DIPYRIDAMOLE [Concomitant]
  4. FUROSEMIDE [Concomitant]

REACTIONS (7)
  - BLOOD CALCIUM INCREASED [None]
  - BLOOD CREATINE INCREASED [None]
  - BLOOD POTASSIUM INCREASED [None]
  - DRUG TOXICITY [None]
  - HYPOGLYCAEMIA [None]
  - NON-HODGKIN'S LYMPHOMA [None]
  - OVERDOSE [None]
